FAERS Safety Report 8264567-8 (Version None)
Quarter: 2012Q2

REPORT INFORMATION
  Report Type: 
  Country: None (occurrence: None)
  Receive Date: 20120403
  Receipt Date: 20120321
  Transmission Date: 20120825
  Serious: Yes (Death, Hospitalization)
  Sender: FDA-Public Use
  Company Number: 20120104

PATIENT
  Age: 78 Year
  Sex: Female
  Weight: 59.5 kg

DRUGS (1)
  1. VENOFER [Suspect]
     Indication: TRANSFERRIN SATURATION DECREASED
     Dosage: 200 MG OVER 15 MINUTES INTRAVENOUS BOLUS
     Route: 040
     Dates: start: 20120111, end: 20120111

REACTIONS (10)
  - URINARY TRACT INFECTION [None]
  - CONVULSION [None]
  - TREATMENT NONCOMPLIANCE [None]
  - PRURITUS [None]
  - FUNGAL PERITONITIS [None]
  - BACK PAIN [None]
  - HYPOPHAGIA [None]
  - WHITE BLOOD CELL COUNT INCREASED [None]
  - NECK PAIN [None]
  - GASTROINTESTINAL HAEMORRHAGE [None]
